FAERS Safety Report 25214667 (Version 1)
Quarter: 2025Q2

REPORT INFORMATION
  Report Type: Spontaneous
  Country: HR (occurrence: HR)
  Receive Date: 20250418
  Receipt Date: 20250418
  Transmission Date: 20250717
  Serious: Yes (Other)
  Sender: FRESENIUS KABI
  Company Number: None

PATIENT
  Sex: Male

DRUGS (1)
  1. OXALIPLATIN [Suspect]
     Active Substance: OXALIPLATIN
     Indication: Product used for unknown indication
     Route: 042

REACTIONS (6)
  - General physical health deterioration [Unknown]
  - Asthenia [Unknown]
  - Erythema [Unknown]
  - Nausea [Unknown]
  - Chills [Unknown]
  - Body temperature increased [Unknown]

NARRATIVE: CASE EVENT DATE: 20250403
